FAERS Safety Report 5208303-8 (Version None)
Quarter: 2007Q1

REPORT INFORMATION
  Report Type: 
  Country: None (occurrence: None)
  Receive Date: 20070110
  Receipt Date: 20070110
  Transmission Date: 20070707
  Serious: Yes (Life-Threatening, Other)
  Sender: FDA-Public Use
  Company Number: None

PATIENT
  Age: 57 Year
  Sex: Male
  Weight: 63.9572 kg

DRUGS (2)
  1. AVASTIN [Suspect]
     Indication: OESOPHAGEAL ADENOCARCINOMA METASTATIC
     Dosage: 700 MG -TOTAL- EVERY 2 WEEKS IV
     Route: 042
     Dates: start: 20060608, end: 20061228
  2. AVASTIN [Suspect]
     Indication: OESOPHAGEAL ADENOCARCINOMA METASTATIC
     Dosage: 700 MG -TOTAL- EVERY 2 WEEKS IV
     Route: 042
     Dates: start: 20060608, end: 20061228

REACTIONS (8)
  - DRUG TOXICITY [None]
  - INCISION SITE COMPLICATION [None]
  - INJURY [None]
  - OPEN WOUND [None]
  - POSTOPERATIVE WOUND COMPLICATION [None]
  - SCAR [None]
  - SMALL INTESTINAL OBSTRUCTION [None]
  - WOUND DEHISCENCE [None]
